FAERS Safety Report 5971449-0 (Version None)
Quarter: 2008Q4

REPORT INFORMATION
  Report Type: 
  Country: None (occurrence: None)
  Receive Date: 20081201
  Receipt Date: 20081118
  Transmission Date: 20090506
  Serious: Yes (Life-Threatening, Hospitalization)
  Sender: FDA-Public Use
  Company Number: JP-JNJFOC-20081006115

PATIENT
  Sex: Male
  Weight: 47 kg

DRUGS (10)
  1. REMICADE [Suspect]
     Dosage: INFUSION 2-6 ON UNSPECIFIED DATES
     Route: 042
  2. REMICADE [Suspect]
     Indication: RHEUMATOID ARTHRITIS
     Dosage: 6 INFUSIONS (DATE UNSPECIFIED)
     Route: 042
  3. PREDONINE [Suspect]
     Indication: RHEUMATOID ARTHRITIS
     Route: 048
  4. RHEUMATREX [Suspect]
     Indication: RHEUMATOID ARTHRITIS
     Route: 048
  5. ISONIAZID [Concomitant]
     Indication: ANTIBIOTIC PROPHYLAXIS
     Route: 048
  6. PYDOXAL [Concomitant]
     Indication: PROPHYLAXIS
     Route: 048
  7. CYTOTEC [Concomitant]
     Indication: GASTRITIS
     Route: 048
  8. ALFAROL [Concomitant]
     Indication: OSTEOPOROSIS
     Route: 048
  9. PITAVASTATIN CALCIUM [Concomitant]
     Indication: HYPERLIPIDAEMIA
     Route: 048
  10. DICLOFENAC SODIUM [Concomitant]
     Indication: RHEUMATOID ARTHRITIS
     Route: 048

REACTIONS (1)
  - PNEUMOCYSTIS JIROVECI PNEUMONIA [None]
